FAERS Safety Report 9945483 (Version 1)
Quarter: 2014Q1

REPORT INFORMATION
  Report Type: Report from Study
  Country: US (occurrence: US)
  Receive Date: 20140303
  Receipt Date: 20140303
  Transmission Date: 20141002
  Serious: No
  Sender: FDA-Public Use
  Company Number: US-ABBVIE-13P-163-1051634-00

PATIENT
  Age: 55 Year
  Sex: Female
  Weight: 54.48 kg

DRUGS (2)
  1. HUMIRA [Suspect]
     Indication: PSORIATIC ARTHROPATHY
     Dates: start: 201112
  2. CELEBREX [Concomitant]
     Indication: PSORIATIC ARTHROPATHY

REACTIONS (2)
  - Tooth fracture [Recovered/Resolved]
  - Tooth abscess [Recovered/Resolved]
